FAERS Safety Report 15597944 (Version 1)
Quarter: 2018Q4

REPORT INFORMATION
  Report Type: Spontaneous
  Country: US (occurrence: US)
  Receive Date: 20181105
  Receipt Date: 20181105
  Transmission Date: 20190205
  Serious: Yes (Hospitalization)
  Sender: FDA-Public Use
  Company Number: None

PATIENT
  Age: 71 Year
  Sex: Female
  Weight: 60 kg

DRUGS (16)
  1. TRASTUZUMAB 6MG/KG [Suspect]
     Active Substance: TRASTUZUMAB
     Indication: BREAST CANCER
     Route: 042
     Dates: start: 20180711
  2. DOXORUBICIN [Concomitant]
     Active Substance: DOXORUBICIN
  3. NEULASTA [Concomitant]
     Active Substance: PEGFILGRASTIM
  4. PACLITAXEL. [Concomitant]
     Active Substance: PACLITAXEL
  5. CYCLOPHOSPHAMIDE. [Concomitant]
     Active Substance: CYCLOPHOSPHAMIDE
  6. TAMSULOSIN [Concomitant]
     Active Substance: TAMSULOSIN
  7. TRASTUZUMAB 6MG/KG [Suspect]
     Active Substance: TRASTUZUMAB
     Dates: start: 20180801
  8. TRASTUZUMAB. [Concomitant]
     Active Substance: TRASTUZUMAB
  9. CARBOPLATIN. [Concomitant]
     Active Substance: CARBOPLATIN
  10. PEGFILGRASTIM [Concomitant]
     Active Substance: PEGFILGRASTIM
  11. PERTUZUMAB 420 MG [Suspect]
     Active Substance: PERTUZUMAB
     Indication: BREAST CANCER
     Route: 042
     Dates: start: 20180711
  12. ABRAXANE [Concomitant]
     Active Substance: PACLITAXEL
  13. PERTUZUMAB 420 MG [Suspect]
     Active Substance: PERTUZUMAB
     Dates: start: 20180718
  14. PERTUZUMAB 420 MG [Suspect]
     Active Substance: PERTUZUMAB
     Dates: start: 20180801
  15. PERTUZUMAB. [Concomitant]
     Active Substance: PERTUZUMAB
  16. FILGRASTIM [Concomitant]
     Active Substance: FILGRASTIM

REACTIONS (6)
  - Haemoglobin decreased [None]
  - Neutropenia [None]
  - White blood cell count decreased [None]
  - Neutrophil count decreased [None]
  - Anaemia [None]
  - Atrial fibrillation [None]

NARRATIVE: CASE EVENT DATE: 20180826
